FAERS Safety Report 6724068-2 (Version None)
Quarter: 2010Q2

REPORT INFORMATION
  Report Type: 
  Country: None (occurrence: None)
  Receive Date: 20100513
  Receipt Date: 20100504
  Transmission Date: 20101027
  Serious: Yes (Other)
  Sender: FDA-Public Use
  Company Number: D0067533A

PATIENT
  Sex: Female

DRUGS (2)
  1. ARIXTRA [Suspect]
     Dosage: 5MG UNKNOWN
     Route: 065
  2. AZATHIOPRINE [Suspect]
     Dosage: 100MG PER DAY
     Route: 048

REACTIONS (2)
  - DRUG INTERACTION [None]
  - SYSTEMIC LUPUS ERYTHEMATOSUS [None]
